FAERS Safety Report 10916640 (Version 4)
Quarter: 2015Q3

REPORT INFORMATION
  Report Type: Spontaneous
  Country: JP (occurrence: None)
  Receive Date: 20150311
  Receipt Date: 20150717
  Transmission Date: 20151125
  Serious: Yes (Life-Threatening, Hospitalization)
  Sender: FDA-Public Use
  Company Number: JP-2015VAL000197

PATIENT
  Age: 78 Year
  Sex: Male
  Weight: 46 kg

DRUGS (8)
  1. ATELEC (CILNIDIPINE) [Concomitant]
     Active Substance: CILNIDIPINE
  2. LOPRESSOR [Suspect]
     Active Substance: METOPROLOL TARTRATE
     Indication: HYPERTENSION
     Route: 048
     Dates: start: 20131120, end: 20131121
  3. PREDNISOLONE (PREDNISOLONE) [Concomitant]
     Active Substance: PREDNISOLONE
  4. ALLEGRA (FEXOFENADINE HYDROCHLORIDE) [Concomitant]
  5. OLMETEC [Concomitant]
     Active Substance: OLMESARTAN MEDOXOMIL
  6. TAKEPRON (LANSOPRAZOLE) [Concomitant]
     Active Substance: LANSOPRAZOLE
  7. ADALAT (NIFEDIPINE) [Concomitant]
  8. FEBURIC (FEBUXOSTAT) [Concomitant]
     Active Substance: FEBUXOSTAT

REACTIONS (7)
  - No therapeutic response [None]
  - Hepatic encephalopathy [None]
  - Coma [None]
  - Aspiration [None]
  - Hepatic failure [None]
  - Haemodialysis [None]
  - Ammonia increased [None]

NARRATIVE: CASE EVENT DATE: 20131121
